FAERS Safety Report 6895911-1 (Version None)
Quarter: 2010Q3

REPORT INFORMATION
  Report Type: 
  Country: None (occurrence: None)
  Receive Date: 20100802
  Receipt Date: 20100728
  Transmission Date: 20110219
  Serious: Yes (Hospitalization, Other)
  Sender: FDA-Public Use
  Company Number: US-B.I. PHARMACEUTICALS,INC./RIDGEFIELD-2010-BP-08517BP

PATIENT
  Sex: Female
  Weight: 89.72 kg

DRUGS (10)
  1. SPIRIVA [Suspect]
     Dosage: 1 PUF
     Route: 055
     Dates: start: 20100129
  2. DOUBLE BLIND MEDICATION [Suspect]
     Indication: PROPHYLAXIS
     Dates: start: 20100203
  3. WHOLE BRAIN RADIOTHERAPY [Suspect]
     Dosage: 37.5 GY/15 FRACTIONS
     Dates: start: 20100203, end: 20100219
  4. MS CONTIN [Suspect]
     Dosage: 90 MG
     Route: 048
     Dates: start: 20100129
  5. REMERON [Suspect]
     Route: 048
     Dates: start: 20100129
  6. DILANTIN [Suspect]
     Dates: end: 20100314
  7. KEPPRA [Suspect]
     Dosage: 3000 MG
     Route: 048
  8. ADVAIR DISKUS 100/50 [Suspect]
     Route: 055
     Dates: start: 20100127
  9. ALBUTEROL [Suspect]
     Route: 055
     Dates: start: 20100129
  10. DECADRON [Suspect]
     Dosage: 8 MG
     Route: 048
     Dates: start: 20100129

REACTIONS (3)
  - METASTASES TO CENTRAL NERVOUS SYSTEM [None]
  - METASTASES TO SPINE [None]
  - PULMONARY EMBOLISM [None]
